FAERS Safety Report 26036101 (Version 3)
Quarter: 2025Q4

REPORT INFORMATION
  Report Type: Spontaneous
  Country: RS (occurrence: RS)
  Receive Date: 20251112
  Receipt Date: 20251210
  Transmission Date: 20260118
  Serious: Yes (Other)
  Sender: MERCK SHARP & DOHME LLC
  Company Number: RS-009507513-2347727

PATIENT
  Age: 64 Year
  Sex: Male
  Weight: 77 kg

DRUGS (1)
  1. PEMBROLIZUMAB [Suspect]
     Active Substance: PEMBROLIZUMAB
     Indication: Squamous cell carcinoma of lung
     Dosage: 4C ?(1C ON EVERY 21 DAY)
     Dates: start: 20240917, end: 20241119

REACTIONS (12)
  - Pulmonary fibrosis [Unknown]
  - Anaemia [Not Recovered/Not Resolved]
  - Eosinophilia [Not Recovered/Not Resolved]
  - Pneumonectomy [Unknown]
  - C-reactive protein increased [Unknown]
  - Inflammation [Unknown]
  - White blood cell count increased [Recovered/Resolved]
  - Neutrophil percentage decreased [Recovered/Resolved]
  - Basophil percentage increased [Recovered/Resolved]
  - Lymphocyte percentage decreased [Not Recovered/Not Resolved]
  - Neutrophil count increased [Recovered/Resolved]
  - Therapy partial responder [Unknown]

NARRATIVE: CASE EVENT DATE: 20241008
